FAERS Safety Report 6216636-1 (Version None)
Quarter: 2009Q2

REPORT INFORMATION
  Report Type: 
  Country: None (occurrence: None)
  Receive Date: 20090605
  Receipt Date: 20090525
  Transmission Date: 20091009
  Serious: Yes (Hospitalization)
  Sender: FDA-Public Use
  Company Number: MX-ROCHE-629623

PATIENT
  Sex: Female
  Weight: 66 kg

DRUGS (10)
  1. PEG-INTERFERON ALFA 2A (RO 25-8310) [Suspect]
     Indication: HEPATITIS C
     Route: 058
     Dates: start: 20090320
  2. RIBAVIRIN [Suspect]
     Indication: HEPATITIS C
     Route: 048
     Dates: start: 20090320
  3. TELMISARTAN [Concomitant]
     Indication: HYPERTENSION
     Route: 048
     Dates: start: 20080801
  4. TELMISARTAN [Concomitant]
     Route: 048
     Dates: start: 20080901
  5. FOLIC ACID [Concomitant]
     Indication: VITAMIN SUPPLEMENTATION
     Route: 048
     Dates: start: 20090101
  6. VITAMIN B COMPLEX CAP [Concomitant]
     Indication: VITAMIN SUPPLEMENTATION
     Route: 048
     Dates: start: 20090201
  7. OMEPRAZOL [Concomitant]
     Indication: GASTRITIS
     Route: 048
     Dates: start: 20080901
  8. SULINDACO [Concomitant]
     Indication: PAIN
     Route: 048
     Dates: start: 20090522
  9. CLORIDRATO DE DICICLOVERINA [Concomitant]
     Dosage: DRUG NAME REPORTED: DISICLOVERINA
     Route: 048
     Dates: start: 20090522
  10. FERROUS FUMARATE [Concomitant]
     Dosage: FREQUENCY REPORTED AS QD.
     Route: 048
     Dates: start: 20090401

REACTIONS (11)
  - ABDOMINAL PAIN UPPER [None]
  - ALOPECIA [None]
  - ANOREXIA [None]
  - BACK PAIN [None]
  - CHILLS [None]
  - DIARRHOEA [None]
  - LOSS OF CONSCIOUSNESS [None]
  - NAUSEA [None]
  - PYREXIA [None]
  - VOMITING [None]
  - YELLOW SKIN [None]
